FAERS Safety Report 17037890 (Version 1)
Quarter: 2019Q4

REPORT INFORMATION
  Report Type: Spontaneous
  Country: US (occurrence: US)
  Receive Date: 20191115
  Receipt Date: 20191115
  Transmission Date: 20200122
  Serious: No
  Sender: FDA-Public Use
  Company Number: US-009507513-1911USA005954

PATIENT
  Age: 59 Year
  Sex: Male

DRUGS (8)
  1. ENTACAPONE. [Suspect]
     Active Substance: ENTACAPONE
     Dosage: 200 MILLIGRAM, TID
  2. VENLAFAXINE HYDROCHLORIDE. [Suspect]
     Active Substance: VENLAFAXINE HYDROCHLORIDE
     Dosage: 150 MILLIGRAM, QD
  3. DROXIDOPA [Interacting]
     Active Substance: DROXIDOPA
     Dosage: 400 MILLIGRAM, BID
  4. CARBIDOPA. [Suspect]
     Active Substance: CARBIDOPA
     Dosage: 25 MILLIGRAM
  5. SINEMET CR [Interacting]
     Active Substance: CARBIDOPA\LEVODOPA
     Indication: DEMENTIA WITH LEWY BODIES
     Dosage: 50 TO 200 MG AT BEDTIME
     Route: 048
  6. FLUDROCORTISONE [Interacting]
     Active Substance: FLUDROCORTISONE
     Indication: ORTHOSTATIC HYPOTENSION
     Dosage: UNK
  7. SINEMET [Suspect]
     Active Substance: CARBIDOPA\LEVODOPA
     Indication: DEMENTIA WITH LEWY BODIES
     Dosage: 25 TO 100 MG ONE AND A HALF TABLETS THREE TIMES A DAY
     Route: 048
  8. DROXIDOPA [Interacting]
     Active Substance: DROXIDOPA
     Indication: ORTHOSTATIC HYPOTENSION
     Dosage: 100 MILLIGRAM, BID

REACTIONS (5)
  - Off label use [Unknown]
  - Drug interaction [Unknown]
  - Irritability [Recovered/Resolved]
  - Agitation [Recovered/Resolved]
  - Overdose [Unknown]
